FAERS Safety Report 18032778 (Version 1)
Quarter: 2020Q3

REPORT INFORMATION
  Report Type: Spontaneous
  Country: US (occurrence: US)
  Receive Date: 20200716
  Receipt Date: 20200716
  Transmission Date: 20201103
  Serious: No
  Sender: FDA-Public Use
  Company Number: US-ASTRAZENECA-2020SE80238

PATIENT
  Sex: Female

DRUGS (1)
  1. FASENRA [Suspect]
     Active Substance: BENRALIZUMAB
     Dosage: SHE TOOK 1 SHOT OF FASENRA PREFILLED SYRINGE IN OCTOBER, 1 SHOT IN DECEMBER AND THEN 1 SHOT EVERY...
     Route: 058
     Dates: start: 201910, end: 20200211

REACTIONS (2)
  - Product dose omission issue [Unknown]
  - Dyspnoea [Not Recovered/Not Resolved]
